FAERS Safety Report 5892248-4 (Version None)
Quarter: 2008Q3

REPORT INFORMATION
  Report Type: 
  Country: None (occurrence: None)
  Receive Date: 20080919
  Receipt Date: 20080807
  Transmission Date: 20090109
  Serious: Yes (Hospitalization)
  Sender: FDA-Public Use
  Company Number: UTC-000346

PATIENT
  Age: 13 Year
  Sex: Male
  Weight: 40 kg

DRUGS (5)
  1. REMODULIN [Suspect]
     Indication: PULMONARY ARTERIAL HYPERTENSION
     Dosage: SEE IMAGE
     Route: 058
     Dates: start: 20070501, end: 20080720
  2. REMODULIN [Suspect]
     Indication: PULMONARY ARTERIAL HYPERTENSION
     Dosage: SEE IMAGE
     Route: 058
     Dates: start: 20080721
  3. TRACLEER [Concomitant]
  4. DIGOXIN [Concomitant]
  5. COUMADIN [Concomitant]

REACTIONS (4)
  - DEVICE FAILURE [None]
  - DEVICE MALFUNCTION [None]
  - SKIN DISCOLOURATION [None]
  - SKIN WARM [None]
